FAERS Safety Report 10206675 (Version 1)
Quarter: 2014Q2

REPORT INFORMATION
  Report Type: Spontaneous
  Country: US (occurrence: None)
  Receive Date: 20140528
  Receipt Date: 20140528
  Transmission Date: 20141212
  Serious: Yes (Disabling)
  Sender: FDA-Public Use
  Company Number: None

PATIENT
  Age: 56 Year
  Sex: Female
  Weight: 70.31 kg

DRUGS (1)
  1. LOVAZA 1 GM [Suspect]
     Indication: BLOOD CHOLESTEROL INCREASED
     Dosage: 2 CAPS TWICE A DAY TWICE DAILY

REACTIONS (9)
  - Dizziness [None]
  - Dyspnoea [None]
  - Headache [None]
  - Neck pain [None]
  - Abasia [None]
  - Impaired driving ability [None]
  - Aphasia [None]
  - Hypertension [None]
  - Hypersensitivity [None]
